FAERS Safety Report 4635812-2 (Version None)
Quarter: 2005Q2

REPORT INFORMATION
  Report Type: 
  Country: None (occurrence: None)
  Receive Date: 20050415
  Receipt Date: 20050405
  Transmission Date: 20051028
  Serious: Yes (Death, Hospitalization)
  Sender: FDA-Public Use
  Company Number: US-JNJFOC-20050401544

PATIENT
  Sex: Female

DRUGS (18)
  1. REMICADE [Suspect]
     Route: 042
  2. REMICADE [Suspect]
     Indication: CONNECTIVE TISSUE DISORDER
     Route: 042
  3. MEDROL [Concomitant]
  4. HUMIBID LA [Concomitant]
  5. NASACORT [Concomitant]
  6. DUONEB [Concomitant]
  7. DUONEB [Concomitant]
  8. SYNTHROID [Concomitant]
  9. PLAQUENIL [Concomitant]
  10. AMBIEN [Concomitant]
  11. AVAPRO [Concomitant]
  12. TOPROL-XL [Concomitant]
  13. PLAVIX [Concomitant]
  14. FUROSEMIDE [Concomitant]
  15. FOSAMAX [Concomitant]
  16. ADVAIR DISKUS 100/50 [Concomitant]
  17. ADVAIR DISKUS 100/50 [Concomitant]
  18. DETROL LA [Concomitant]

REACTIONS (5)
  - CANDIDIASIS [None]
  - CHRONIC OBSTRUCTIVE AIRWAYS DISEASE EXACERBATED [None]
  - FRACTURE [None]
  - METASTASES TO LIVER [None]
  - PNEUMONIA LEGIONELLA [None]
